FAERS Safety Report 18523041 (Version 1)
Quarter: 2020Q4

REPORT INFORMATION
  Report Type: Report from Study
  Country: US (occurrence: US)
  Receive Date: 20201119
  Receipt Date: 20201119
  Transmission Date: 20210114
  Serious: Yes (Other)
  Sender: FDA-Public Use
  Company Number: US-MYLANLABS-2020M1095821

PATIENT
  Age: 6 Year
  Sex: Female

DRUGS (11)
  1. ETOPOSIDE. [Suspect]
     Active Substance: ETOPOSIDE
     Indication: EMBRYONAL RHABDOMYOSARCOMA
     Dosage: UNK
     Route: 065
  2. CYCLOPHOSPHAMIDE. [Suspect]
     Active Substance: CYCLOPHOSPHAMIDE
     Indication: EMBRYONAL RHABDOMYOSARCOMA
     Dosage: UNK
     Route: 065
  3. DOXORUBICIN [Suspect]
     Active Substance: DOXORUBICIN
     Indication: EMBRYONAL RHABDOMYOSARCOMA
     Dosage: UNK
     Route: 065
  4. VINCRISTINE [Suspect]
     Active Substance: VINCRISTINE
     Indication: EMBRYONAL RHABDOMYOSARCOMA
     Dosage: UNK
     Route: 065
  5. IRINOTECAN [Suspect]
     Active Substance: IRINOTECAN
     Indication: EMBRYONAL RHABDOMYOSARCOMA
     Dosage: UNK
     Route: 048
  6. DASATINIB. [Suspect]
     Active Substance: DASATINIB
     Indication: EMBRYONAL RHABDOMYOSARCOMA
     Dosage: UNK
     Route: 065
  7. IFOSFAMIDE. [Suspect]
     Active Substance: IFOSFAMIDE
     Indication: EMBRYONAL RHABDOMYOSARCOMA
     Dosage: UNK
     Route: 065
  8. BEVACIZUMAB. [Suspect]
     Active Substance: BEVACIZUMAB
     Indication: EMBRYONAL RHABDOMYOSARCOMA
     Route: 065
  9. GANITUMAB [Suspect]
     Active Substance: GANITUMAB
     Indication: EMBRYONAL RHABDOMYOSARCOMA
     Dosage: UNK
     Route: 065
  10. VINORELBINE [Suspect]
     Active Substance: VINORELBINE TARTRATE
     Indication: EMBRYONAL RHABDOMYOSARCOMA
     Dosage: UNK
     Route: 065
  11. TEMSIROLIMUS. [Suspect]
     Active Substance: TEMSIROLIMUS
     Indication: EMBRYONAL RHABDOMYOSARCOMA
     Route: 065

REACTIONS (2)
  - Cardiotoxicity [Unknown]
  - Drug ineffective [Unknown]
